FAERS Safety Report 14128462 (Version 1)
Quarter: 2017Q4

REPORT INFORMATION
  Report Type: Spontaneous
  Country: FR (occurrence: FR)
  Receive Date: 20171026
  Receipt Date: 20171026
  Transmission Date: 20180321
  Serious: Yes (Hospitalization)
  Sender: FDA-Public Use
  Company Number: FR-PFIZER INC-2017461267

PATIENT
  Age: 54 Year
  Sex: Male

DRUGS (14)
  1. TERCIAN [Suspect]
     Active Substance: CYAMEMAZINE
     Dosage: 9.5 G, UNK (TOTAL)
     Route: 048
     Dates: start: 20170621, end: 20170621
  2. BISOCE [Suspect]
     Active Substance: BISOPROLOL
     Dosage: 25 MG, UNK (TOTAL)
     Route: 048
     Dates: start: 20170621, end: 20170621
  3. NORSET [Concomitant]
     Active Substance: MIRTAZAPINE
     Dosage: UNK
  4. TEMESTA (LORAZEPAM) [Concomitant]
     Active Substance: LORAZEPAM
     Dosage: UNK
  5. KARDEGIC [Concomitant]
     Active Substance: ASPIRIN DL-LYSINE
     Dosage: UNK
  6. HEPTAMYL [Concomitant]
     Active Substance: HEPTAMINOL HYDROCHLORIDE
     Dosage: UNK
  7. RAMIPRIL. [Suspect]
     Active Substance: RAMIPRIL
     Dosage: 25 MG, TOTAL
     Route: 048
     Dates: start: 20170621, end: 20170621
  8. BISOCE [Suspect]
     Active Substance: BISOPROLOL
     Indication: SUICIDE ATTEMPT
     Dosage: 1.25 MG, DAILY
     Route: 048
  9. LORAZEPAM. [Suspect]
     Active Substance: LORAZEPAM
     Indication: SUICIDE ATTEMPT
     Dosage: 75 MG, UNK (TOTAL)
     Route: 048
     Dates: start: 20170621, end: 20170621
  10. MIRTAZAPINE. [Suspect]
     Active Substance: MIRTAZAPINE
     Indication: SUICIDE ATTEMPT
     Dosage: 900 MG, UNK (TOTAL)
     Route: 048
     Dates: start: 20170621, end: 20170621
  11. PAROXETINE. [Concomitant]
     Active Substance: PAROXETINE
     Dosage: UNK
  12. RAMIPRIL. [Suspect]
     Active Substance: RAMIPRIL
     Indication: SUICIDE ATTEMPT
     Dosage: 1.25 MG, DAILY
     Route: 048
  13. SULFARLEM [Concomitant]
     Active Substance: ANETHOLTRITHION
     Dosage: UNK
  14. TERCIAN [Suspect]
     Active Substance: CYAMEMAZINE
     Indication: SUICIDE ATTEMPT
     Dosage: 25 MG, 3X/DAY
     Route: 048

REACTIONS (17)
  - Hyperthermia [Recovered/Resolved]
  - Hypotension [Recovered/Resolved]
  - Electrocardiogram QRS complex prolonged [Recovered/Resolved]
  - Vasoplegia syndrome [Recovered/Resolved]
  - Renal tubular necrosis [Unknown]
  - Ischaemic hepatitis [Unknown]
  - Acute kidney injury [Unknown]
  - Suicide attempt [Unknown]
  - Sinus tachycardia [Recovered/Resolved]
  - Acute hepatic failure [Recovered/Resolved]
  - Intentional overdose [Unknown]
  - Gastrointestinal ischaemia [Unknown]
  - Coma [Recovered/Resolved]
  - Cardiogenic shock [Recovered/Resolved]
  - Rhabdomyolysis [Unknown]
  - Confusional state [Recovering/Resolving]
  - Multiple organ dysfunction syndrome [Unknown]

NARRATIVE: CASE EVENT DATE: 20170621
